FAERS Safety Report 9863799 (Version 1)
Quarter: 2014Q1

REPORT INFORMATION
  Report Type: Spontaneous
  Country: GB (occurrence: GB)
  Receive Date: 20140203
  Receipt Date: 20140203
  Transmission Date: 20141002
  Serious: Yes (Other)
  Sender: FDA-Public Use
  Company Number: GB-MERCK-1401GBR014014

PATIENT
  Sex: Male

DRUGS (2)
  1. LOSARTAN POTASSIUM [Suspect]
     Indication: PRODUCT USED FOR UNKNOWN INDICATION
     Dosage: 50 MG
     Route: 065
  2. RAMIPRIL [Suspect]
     Indication: PRODUCT USED FOR UNKNOWN INDICATION
     Route: 065

REACTIONS (4)
  - Diabetes mellitus inadequate control [Unknown]
  - Pain [Unknown]
  - Cough [Unknown]
  - Fatigue [Unknown]
